FAERS Safety Report 11044013 (Version 1)
Quarter: 2015Q2

REPORT INFORMATION
  Report Type: Spontaneous
  Country: US (occurrence: US)
  Receive Date: 20150417
  Receipt Date: 20150417
  Transmission Date: 20150821
  Serious: Yes (Other)
  Sender: FDA-Public Use
  Company Number: US-PERRIGO-15US003717

PATIENT
  Age: 64 Year
  Sex: Male

DRUGS (1)
  1. TESTOSTERONE CYPIONATE USP RX 200 MG/ML 9Z8 [Suspect]
     Active Substance: TESTOSTERONE CYPIONATE
     Indication: LOSS OF LIBIDO
     Dosage: 250 MG, EVERY 2 WEEKS
     Route: 030

REACTIONS (3)
  - Oestradiol increased [Unknown]
  - Deep vein thrombosis [Unknown]
  - Pulmonary embolism [Unknown]
